FAERS Safety Report 5722089-X (Version None)
Quarter: 2008Q2

REPORT INFORMATION
  Report Type: 
  Country: None (occurrence: None)
  Receive Date: 20080429
  Receipt Date: 20070614
  Transmission Date: 20081010
  Serious: No
  Sender: FDA-Public Use
  Company Number: US-ASTRAZENECA-2007UW14264

PATIENT
  Age: 66 Year
  Sex: Female
  Weight: 54.4 kg

DRUGS (5)
  1. NEXIUM [Suspect]
     Indication: BARRETT'S OESOPHAGUS
     Route: 048
     Dates: start: 20070501
  2. VITAMINS [Concomitant]
  3. SYNTHROID [Concomitant]
  4. CALCIUM [Concomitant]
  5. METAMUCIL [Concomitant]

REACTIONS (3)
  - DYSPHONIA [None]
  - THROAT IRRITATION [None]
  - WEIGHT DECREASED [None]
